FAERS Safety Report 6590808-9 (Version None)
Quarter: 2010Q1

REPORT INFORMATION
  Report Type: 
  Country: None (occurrence: None)
  Receive Date: 20100219
  Receipt Date: 20100208
  Transmission Date: 20100710
  Serious: Yes (Other)
  Sender: FDA-Public Use
  Company Number: JP-PFIZER INC-2010018216

PATIENT
  Age: 67 Year
  Sex: Female

DRUGS (6)
  1. SUNITINIB MALATE [Suspect]
     Indication: RENAL CELL CARCINOMA
     Dosage: 37.5 MG, 1X/DAY
     Route: 048
     Dates: start: 20091006
  2. OLMETEC [Concomitant]
     Dosage: UNK
     Route: 048
  3. LENDORMIN [Concomitant]
     Dosage: UNK
     Route: 048
  4. POSTERISAN FORTE [Concomitant]
     Dosage: UNK
     Route: 062
  5. ACECOL [Concomitant]
     Dosage: UNK
     Route: 048
     Dates: start: 20091027
  6. MUCOSTA [Concomitant]
     Dosage: UNK
     Route: 048
     Dates: start: 20091019

REACTIONS (2)
  - DIZZINESS [None]
  - VISION BLURRED [None]
